FAERS Safety Report 20742140 (Version 1)
Quarter: 2022Q2

REPORT INFORMATION
  Report Type: Spontaneous
  Country: JP (occurrence: JP)
  Receive Date: 20220423
  Receipt Date: 20220423
  Transmission Date: 20220721
  Serious: Yes (Life-Threatening, Hospitalization, Other)
  Sender: FDA-Public Use
  Company Number: JP-MLMSERVICE-20220412-3498958-1

PATIENT
  Age: 77 Year
  Sex: Male
  Weight: 52 kg

DRUGS (9)
  1. PHENYLEPHRINE HYDROCHLORIDE [Suspect]
     Active Substance: PHENYLEPHRINE HYDROCHLORIDE
     Indication: Blood pressure management
     Dosage: UPTO 0.5 UG/KG/MIN
     Route: 042
  2. ROCURONIUM [Concomitant]
     Active Substance: ROCURONIUM BROMIDE
     Indication: Endotracheal intubation
  3. BISOPROLOL FUMARATE [Concomitant]
     Active Substance: BISOPROLOL FUMARATE
     Dosage: 0.625 MG
  4. NIFEDIPINE [Concomitant]
     Active Substance: NIFEDIPINE
  5. REMIFENTANIL [Concomitant]
     Active Substance: REMIFENTANIL
     Indication: Maintenance of anaesthesia
  6. PROPOFOL [Concomitant]
     Active Substance: PROPOFOL
     Indication: Induction of anaesthesia
  7. EDOXABAN [Concomitant]
     Active Substance: EDOXABAN
  8. FENTANYL [Concomitant]
     Active Substance: FENTANYL
     Indication: Induction and maintenance of anaesthesia
  9. DESFLURANE [Concomitant]
     Active Substance: DESFLURANE
     Indication: Maintenance of anaesthesia

REACTIONS (1)
  - Ventricular fibrillation [Recovered/Resolved]
